FAERS Safety Report 13316159 (Version 1)
Quarter: 2017Q1

REPORT INFORMATION
  Report Type: Report from Study
  Country: None (occurrence: US)
  Receive Date: 20170310
  Receipt Date: 20170310
  Transmission Date: 20170428
  Serious: Yes (Hospitalization, Other)
  Sender: FDA-Public Use
  Company Number: US-BIOVITRUM-2017US0250

PATIENT
  Age: 1 Year
  Sex: Male

DRUGS (1)
  1. ORFADIN [Suspect]
     Active Substance: NITISINONE
     Indication: TYROSINAEMIA
     Dosage: 2 MG 1/2 CAPSULE TWICE A WEEK
     Route: 048
     Dates: start: 20160923, end: 20170110

REACTIONS (2)
  - Liver transplant [Unknown]
  - Herpes zoster [Unknown]

NARRATIVE: CASE EVENT DATE: 201512
